FAERS Safety Report 14350395 (Version 1)
Quarter: 2018Q1

REPORT INFORMATION
  Report Type: Report from Study
  Country: DK (occurrence: DK)
  Receive Date: 20180104
  Receipt Date: 20180104
  Transmission Date: 20180509
  Serious: Yes (Hospitalization)
  Sender: FDA-Public Use
  Company Number: DK-B.I. PHARMACEUTICALS,INC./RIDGEFIELD-2018-BI-000328

PATIENT

DRUGS (2)
  1. CATAPRESAN [Suspect]
     Active Substance: CLONIDINE
     Indication: AGITATION POSTOPERATIVE
  2. CATAPRESAN [Suspect]
     Active Substance: CLONIDINE
     Indication: PROPHYLAXIS
     Dosage: 3MCG/KG
     Route: 042

REACTIONS (3)
  - Eating disorder [Unknown]
  - Pallor [Unknown]
  - Fluid intake reduced [Unknown]
